FAERS Safety Report 20938365 (Version 2)
Quarter: 2022Q3

REPORT INFORMATION
  Report Type: Report from Study
  Country: ES (occurrence: ES)
  Receive Date: 20220609
  Receipt Date: 20220811
  Transmission Date: 20221027
  Serious: Yes (Hospitalization)
  Sender: FDA-Public Use
  Company Number: ES-JNJFOC-20220506808

PATIENT
  Age: 37 Year
  Sex: Female
  Weight: 60 kg

DRUGS (8)
  1. DARATUMUMAB [Suspect]
     Active Substance: DARATUMUMAB
     Indication: Plasma cell myeloma
     Dosage: MED KIT 104279
     Route: 058
     Dates: start: 20220329, end: 20220523
  2. SULFAMETHOXAZOLE\TRIMETHOPRIM [Concomitant]
     Active Substance: SULFAMETHOXAZOLE\TRIMETHOPRIM
     Indication: Prophylaxis
  3. FUROSEMIDE [Concomitant]
     Active Substance: FUROSEMIDE
     Indication: Prophylaxis
  4. ACYCLOVIR [Concomitant]
     Active Substance: ACYCLOVIR
     Indication: Prophylaxis
  5. ALOCLAIR [POVIDONE] [Concomitant]
     Indication: Prophylaxis
     Dates: start: 20220412
  6. ALOCLAIR [POVIDONE] [Concomitant]
     Indication: Pulpitis dental
  7. IRON [Concomitant]
     Active Substance: IRON
     Indication: Iron deficiency anaemia
  8. ASPIRIN [Concomitant]
     Active Substance: ASPIRIN
     Indication: Prophylaxis
     Dates: start: 20220531, end: 20220606

REACTIONS (3)
  - Adenoviral upper respiratory infection [Recovered/Resolved]
  - Influenza [Recovered/Resolved]
  - Ischaemic cerebral infarction [Recovered/Resolved]

NARRATIVE: CASE EVENT DATE: 20220429
